FAERS Safety Report 4937505-0 (Version None)
Quarter: 2006Q1

REPORT INFORMATION
  Report Type: 
  Country: None (occurrence: None)
  Receive Date: 20060309
  Receipt Date: 20060208
  Transmission Date: 20060701
  Serious: Yes (Other)
  Sender: FDA-Public Use
  Company Number: CHWYE376909FEB06

PATIENT
  Age: 42 Year
  Sex: Female

DRUGS (6)
  1. ENBREL [Suspect]
     Indication: RHEUMATOID ARTHRITIS
     Route: 058
     Dates: start: 20050614, end: 20050914
  2. RIMIFON [Concomitant]
     Dates: start: 20050401, end: 20060101
  3. ELTROXIN [Concomitant]
  4. ZOLOFT [Concomitant]
  5. ASPEGIC 1000 [Concomitant]
  6. ASPEGIC 1000 [Concomitant]

REACTIONS (3)
  - BRONCHITIS [None]
  - FLATULENCE [None]
  - HAEMOPTYSIS [None]
